FAERS Safety Report 10197531 (Version 1)
Quarter: 2014Q2

REPORT INFORMATION
  Report Type: Spontaneous
  Country: JP (occurrence: JP)
  Receive Date: 20140527
  Receipt Date: 20140527
  Transmission Date: 20141212
  Serious: Yes (Hospitalization)
  Sender: FDA-Public Use
  Company Number: JP-MYLANLABS-2014S1011640

PATIENT
  Age: 27 Year
  Sex: Male
  Weight: 57 kg

DRUGS (6)
  1. LEVOFLOXACIN [Suspect]
     Indication: PULMONARY TUBERCULOSIS
     Dosage: 400 MG/DAY
     Route: 065
     Dates: start: 20120411, end: 20120618
  2. LEVOFLOXACIN [Suspect]
     Indication: OFF LABEL USE
     Dosage: 400 MG/DAY
     Route: 065
     Dates: start: 20120411, end: 20120618
  3. RIFAMPICIN [Concomitant]
     Indication: PULMONARY TUBERCULOSIS
     Dosage: 450 MG/DAY
     Route: 065
     Dates: start: 20111227, end: 20120618
  4. ISONIAZID [Concomitant]
     Indication: PULMONARY TUBERCULOSIS
     Dosage: 300 MG/DAY
     Route: 065
     Dates: start: 20120105, end: 20120618
  5. URSODEOXYCHOLIC ACID [Concomitant]
     Indication: PULMONARY TUBERCULOSIS
     Dosage: 600 MG/DAY
     Route: 065
     Dates: start: 20111201
  6. DIAMMONIUM GLYCYRRHIZINATE [Concomitant]
     Indication: PULMONARY TUBERCULOSIS
     Dosage: GLYCYRRHIZIN           600 MG/DAY
     Route: 065
     Dates: start: 20111201

REACTIONS (1)
  - Drug reaction with eosinophilia and systemic symptoms [Recovered/Resolved]
